FAERS Safety Report 8545706-8 (Version None)
Quarter: 2012Q3

REPORT INFORMATION
  Report Type: 
  Country: None (occurrence: None)
  Receive Date: 20120727
  Receipt Date: 20120322
  Transmission Date: 20120928
  Serious: Yes (Hospitalization)
  Sender: FDA-Public Use
  Company Number: US-UCBSA-059628

PATIENT
  Age: 62 Year
  Sex: Male
  Weight: 99.8 kg

DRUGS (23)
  1. ALLOPURINOL [Concomitant]
  2. NEURONTIN [Concomitant]
  3. LISINOPRIL [Concomitant]
  4. VITAMIN D [Concomitant]
     Indication: CROHN'S DISEASE
  5. NIASPAN [Concomitant]
  6. ASACOL [Concomitant]
     Indication: CROHN'S DISEASE
     Dates: start: 20080125
  7. TYSABRI [Concomitant]
     Indication: CROHN'S DISEASE
     Route: 042
     Dates: start: 20101004
  8. CALCIUM [Concomitant]
     Indication: CROHN'S DISEASE
  9. LOPERAMIDE [Concomitant]
     Indication: CROHN'S DISEASE
  10. CIMZIA [Suspect]
     Indication: CROHN'S DISEASE
     Dates: start: 20100322
  11. MULTI-VITAMIN [Concomitant]
     Indication: CROHN'S DISEASE
  12. ASPIRIN [Concomitant]
     Indication: CROHN'S DISEASE
  13. FISH OIL [Concomitant]
     Indication: CROHN'S DISEASE
  14. ACTOS [Concomitant]
  15. CHROMI OM PICOLINATE [Concomitant]
     Indication: CROHN'S DISEASE
  16. PRILOSEC [Concomitant]
  17. ACETAMINOPHEN [Concomitant]
  18. M.V.I. [Concomitant]
  19. COREG [Concomitant]
  20. LASIX [Concomitant]
  21. FOLIC ACID [Concomitant]
  22. PEPSID [Concomitant]
     Indication: CROHN'S DISEASE
  23. IMODIUM [Concomitant]
     Dosage: 2 MG PRN

REACTIONS (1)
  - RECTAL HAEMORRHAGE [None]
